FAERS Safety Report 10051586 (Version 1)
Quarter: 2014Q2

REPORT INFORMATION
  Report Type: Spontaneous
  Country: TW (occurrence: TW)
  Receive Date: 20140401
  Receipt Date: 20140401
  Transmission Date: 20141212
  Serious: Yes (Other)
  Sender: FDA-Public Use
  Company Number: TW-ACTAVIS-2014-05836

PATIENT
  Age: 54 Year
  Sex: Female

DRUGS (4)
  1. PACLITAXEL (UNKNOWN) [Suspect]
     Indication: UTERINE CANCER
     Dosage: UNK
     Route: 065
  2. PACLITAXEL (UNKNOWN) [Suspect]
     Indication: METASTASES TO LUNG
  3. IFOSFAMIDE [Suspect]
     Indication: UTERINE CANCER
     Dosage: UNK
     Route: 065
  4. IFOSFAMIDE [Suspect]
     Indication: METASTASES TO LUNG

REACTIONS (2)
  - Neutropenic sepsis [Unknown]
  - Nail disorder [Unknown]
